FAERS Safety Report 20057151 (Version 1)
Quarter: 2021Q4

REPORT INFORMATION
  Report Type: Spontaneous
  Country: CA (occurrence: CA)
  Receive Date: 20211111
  Receipt Date: 20211111
  Transmission Date: 20220303
  Serious: Yes (Other)
  Sender: FDA-Public Use
  Company Number: None

PATIENT
  Age: 72 Year
  Sex: Female

DRUGS (11)
  1. AMLODIPINE BESYLATE [Suspect]
     Active Substance: AMLODIPINE BESYLATE
     Indication: Product used for unknown indication
     Route: 065
  2. METFORMIN [Suspect]
     Active Substance: METFORMIN HYDROCHLORIDE
     Indication: Product used for unknown indication
     Route: 065
  3. OMEPRAZOLE [Suspect]
     Active Substance: OMEPRAZOLE
     Indication: Product used for unknown indication
     Route: 048
  4. ACEBUTOLOL HYDROCHLORIDE [Suspect]
     Active Substance: ACEBUTOLOL HYDROCHLORIDE
     Indication: Product used for unknown indication
     Route: 065
  5. AZATHIOPRINE [Suspect]
     Active Substance: AZATHIOPRINE
     Indication: Product used for unknown indication
     Route: 065
  6. HYDRODIURIL [Suspect]
     Active Substance: HYDROCHLOROTHIAZIDE
     Indication: Product used for unknown indication
     Route: 065
  7. IGIVNEX [Suspect]
     Active Substance: HUMAN IMMUNOGLOBULIN G
     Indication: Neuropathy peripheral
     Route: 042
  8. LIPIDIL [Suspect]
     Active Substance: FENOFIBRATE
     Indication: Product used for unknown indication
     Route: 065
  9. LOSEC [Suspect]
     Active Substance: OMEPRAZOLE
     Indication: Product used for unknown indication
     Route: 048
  10. NEURONTIN [Suspect]
     Active Substance: GABAPENTIN
     Indication: Product used for unknown indication
     Route: 065
  11. SYNTHROID [Suspect]
     Active Substance: LEVOTHYROXINE SODIUM
     Indication: Product used for unknown indication
     Dosage: 1 EVERY 1 WEEKS
     Route: 042

REACTIONS (1)
  - Neutropenia [Unknown]
